FAERS Safety Report 6445683-X (Version None)
Quarter: 2009Q4

REPORT INFORMATION
  Report Type: 
  Country: None (occurrence: None)
  Receive Date: 20091118
  Receipt Date: 20091118
  Transmission Date: 20100525
  Serious: Yes (Death)
  Sender: FDA-Public Use
  Company Number: None

PATIENT
  Sex: Female
  Weight: 62.8 kg

DRUGS (4)
  1. IRINOTECAN HCL [Suspect]
     Indication: COLON CANCER
     Dosage: 255 MG IV DRIP
     Route: 041
     Dates: start: 20090611, end: 20090709
  2. OXALIPLATIN [Concomitant]
  3. XELODA [Suspect]
  4. AVASTIN [Suspect]

REACTIONS (2)
  - ABDOMINAL SEPSIS [None]
  - DIARRHOEA [None]
